FAERS Safety Report 8297479-4 (Version None)
Quarter: 2012Q2

REPORT INFORMATION
  Report Type: 
  Country: None (occurrence: None)
  Receive Date: 20120419
  Receipt Date: 20120410
  Transmission Date: 20120825
  Serious: Yes (Other)
  Sender: FDA-Public Use
  Company Number: PHHY2012BR009255

PATIENT
  Age: 69 Year
  Sex: Female

DRUGS (5)
  1. RANITIDINE [Concomitant]
     Indication: ABDOMINAL PAIN UPPER
     Dosage: 1 DF, QD
     Route: 048
  2. ONBREZ [Concomitant]
  3. BROMAZEPAM [Concomitant]
     Indication: INSOMNIA
     Dosage: UNK
     Route: 048
  4. HYGROTON [Concomitant]
     Indication: HYPERTENSION
     Route: 048
  5. FORMOTEROL FUMARATE [Suspect]
     Indication: EMPHYSEMA
     Dosage: 12/400MCG
     Dates: start: 20101201

REACTIONS (8)
  - SYNCOPE [None]
  - CARDIAC DISORDER [None]
  - DYSPNOEA [None]
  - FALL [None]
  - DIZZINESS [None]
  - HEADACHE [None]
  - EPISTAXIS [None]
  - HEAD INJURY [None]
